FAERS Safety Report 16442282 (Version 2)
Quarter: 2020Q2

REPORT INFORMATION
  Report Type: Report from Study
  Country: None (occurrence: US)
  Receive Date: 20190617
  Receipt Date: 20200604
  Transmission Date: 20200713
  Serious: No
  Sender: FDA-Public Use
  Company Number: US-US WORLDMEDS, LLC-USW201903-000517

PATIENT
  Age: 78 Year
  Sex: Male
  Weight: 80.73 kg

DRUGS (19)
  1. APOKYN [Suspect]
     Active Substance: APOMORPHINE HYDROCHLORIDE
     Indication: PARKINSON^S DISEASE
     Route: 058
     Dates: start: 20180905
  2. VITAMIN D3 [Concomitant]
     Active Substance: CHOLECALCIFEROL
  3. CARB/LEVO [Concomitant]
     Active Substance: CARBIDOPA\LEVODOPA
  4. ALEVE [Concomitant]
     Active Substance: NAPROXEN SODIUM
  5. ASA [Concomitant]
     Active Substance: ASPIRIN
  6. ROPINIROLE. [Concomitant]
     Active Substance: ROPINIROLE
  7. ROPINIROLE. [Concomitant]
     Active Substance: ROPINIROLE
  8. ULTRACET [Concomitant]
     Active Substance: ACETAMINOPHEN\TRAMADOL HYDROCHLORIDE
  9. VITAMIN B12 [Concomitant]
     Active Substance: CYANOCOBALAMIN
  10. IRON [Concomitant]
     Active Substance: IRON
  11. TAMSULOSIN [Concomitant]
     Active Substance: TAMSULOSIN
  12. RYTARY [Concomitant]
     Active Substance: CARBIDOPA\LEVODOPA
  13. GLYCOPYRROLATE. [Concomitant]
     Active Substance: GLYCOPYRROLATE
  14. LASIX [Concomitant]
     Active Substance: FUROSEMIDE
  15. APOKYN [Suspect]
     Active Substance: APOMORPHINE HYDROCHLORIDE
     Route: 058
     Dates: start: 20180906
  16. BACLOFEN. [Concomitant]
     Active Substance: BACLOFEN
  17. LORATADINE. [Concomitant]
     Active Substance: LORATADINE
  18. GABAPENTIN. [Concomitant]
     Active Substance: GABAPENTIN
  19. NEURONTIN [Concomitant]
     Active Substance: GABAPENTIN

REACTIONS (3)
  - Device use issue [Unknown]
  - Therapeutic product effect incomplete [Recovered/Resolved]
  - Injection site nodule [Recovered/Resolved]

NARRATIVE: CASE EVENT DATE: 201809
